FAERS Safety Report 21576917 (Version 1)
Quarter: 2022Q4

REPORT INFORMATION
  Report Type: Report from Study
  Country: US (occurrence: US)
  Receive Date: 20221110
  Receipt Date: 20221110
  Transmission Date: 20230113
  Serious: Yes (Hospitalization, Other)
  Sender: FDA-Public Use
  Company Number: US-ABBVIE-4194198

PATIENT
  Age: 53 Year
  Sex: Female

DRUGS (2)
  1. HUMIRA [Suspect]
     Active Substance: ADALIMUMAB
     Indication: Crohn^s disease
     Route: 058
     Dates: end: 20210711
  2. HUMIRA [Suspect]
     Active Substance: ADALIMUMAB
     Indication: Hidradenitis

REACTIONS (8)
  - Transfusion [Unknown]
  - Weight decreased [Unknown]
  - Pollakiuria [Unknown]
  - Peripheral swelling [Unknown]
  - Hospitalisation [Recovered/Resolved]
  - Depression [Unknown]
  - Hypotension [Unknown]
  - Renal pain [Unknown]

NARRATIVE: CASE EVENT DATE: 20221031
